FAERS Safety Report 9251969 (Version 1)
Quarter: 2013Q1

REPORT INFORMATION
  Report Type: Spontaneous
  Country: US (occurrence: None)
  Receive Date: 20130305
  Receipt Date: 20130305
  Transmission Date: 20140127
  Serious: Yes (Other)
  Sender: FDA-Public Use
  Company Number: 163-21880-12092626

PATIENT
  Age: 61 Year
  Sex: Male
  Weight: 99.79 kg

DRUGS (10)
  1. REVLIMID [Suspect]
     Indication: CHRONIC LYMPHOCYTIC LEUKAEMIA
     Dosage: 5 MG, 21 IN 28 D, PO
     Dates: start: 20120817
  2. ADDERAL [Concomitant]
  3. TESTOSTERONE (TESTOSTERONE) [Concomitant]
  4. LEVAQUIN (LEVOFLOXACIN) [Concomitant]
  5. IBUPROFEN (IBUPROFEN) [Concomitant]
  6. KLONOPIN (CLONAZEPAM) [Concomitant]
  7. VICODIN (VICODIN) [Concomitant]
  8. ALLOPURINOL [Concomitant]
  9. ATIVAN (LORAZEPAM) [Concomitant]
  10. ACAI BERRY [Concomitant]

REACTIONS (1)
  - Full blood count decreased [None]
